FAERS Safety Report 4611955-4 (Version None)
Quarter: 2005Q2

REPORT INFORMATION
  Report Type: 
  Country: None (occurrence: None)
  Receive Date: 20050308
  Receipt Date: 20041217
  Transmission Date: 20051028
  Serious: Yes (Other)
  Sender: FDA-Public Use
  Company Number: 2004UW25742

PATIENT
  Age: 69 Year
  Sex: Female
  Weight: 83.914 kg

DRUGS (12)
  1. CRESTOR [Suspect]
     Indication: HYPERCHOLESTEROLAEMIA
     Dosage: 10 MG QD PO
     Route: 048
  2. SYNTHROID [Concomitant]
  3. OGEN [Concomitant]
  4. INDOCIN [Concomitant]
  5. IBUPROFEN [Concomitant]
  6. DARVOCET-N 100 [Concomitant]
  7. ASPIRIN [Concomitant]
  8. NIACIN [Concomitant]
  9. GINGKOMIN [Concomitant]
  10. GARLIC [Concomitant]
  11. VITAMINS [Concomitant]
  12. COD LIVER OIL [Concomitant]

REACTIONS (2)
  - FATIGUE [None]
  - SOMNOLENCE [None]
